FAERS Safety Report 21835452 (Version 1)
Quarter: 2023Q1

REPORT INFORMATION
  Report Type: Spontaneous
  Country: US (occurrence: US)
  Receive Date: 20230109
  Receipt Date: 20230109
  Transmission Date: 20230418
  Serious: No
  Sender: FDA-Public Use
  Company Number: US-SA-SAC20230106000118

PATIENT
  Sex: Female

DRUGS (13)
  1. DUPIXENT [Suspect]
     Active Substance: DUPILUMAB
     Indication: Asthma
     Dosage: 300 MG, QOW
     Route: 058
  2. SYMBICORT [Concomitant]
     Active Substance: BUDESONIDE\FORMOTEROL FUMARATE DIHYDRATE
  3. VALPROIC ACID [Concomitant]
     Active Substance: VALPROIC ACID
  4. PROCHLORPERAZINE [Concomitant]
     Active Substance: PROCHLORPERAZINE
  5. EMGALITY [Concomitant]
     Active Substance: GALCANEZUMAB-GNLM
  6. LAMOTRIGINE [Concomitant]
     Active Substance: LAMOTRIGINE
  7. ACETAMINOPHEN\HYDROCODONE [Concomitant]
     Active Substance: ACETAMINOPHEN\HYDROCODONE
  8. DIAZEPAM [Concomitant]
     Active Substance: DIAZEPAM
  9. MELOXICAM [Concomitant]
     Active Substance: MELOXICAM
  10. AMITRIPTYLINE [Concomitant]
     Active Substance: AMITRIPTYLINE
  11. TIZANIDINE [Concomitant]
     Active Substance: TIZANIDINE
  12. MUPIROCIN [Concomitant]
     Active Substance: MUPIROCIN
  13. MONTELUKAST [Concomitant]
     Active Substance: MONTELUKAST SODIUM

REACTIONS (2)
  - COVID-19 [Unknown]
  - Asthma [Unknown]
